FAERS Safety Report 9348403 (Version 4)
Quarter: 2013Q2

REPORT INFORMATION
  Report Type: Spontaneous
  Country: US (occurrence: US)
  Receive Date: 20130614
  Receipt Date: 20130627
  Transmission Date: 20140414
  Serious: No
  Sender: FDA-Public Use
  Company Number: US-PFIZER INC-2013178973

PATIENT
  Age: 29 Year
  Sex: Female
  Weight: 68.03 kg

DRUGS (4)
  1. LYRICA [Suspect]
     Indication: FIBROMYALGIA
     Dosage: 75 MG, 2X/DAY
     Route: 048
  2. LYRICA [Suspect]
     Dosage: 75 MG, 4X/DAY
     Route: 048
  3. AMBIEN [Concomitant]
     Dosage: UNK
  4. ZYRTEC [Concomitant]
     Indication: HYPERSENSITIVITY
     Dosage: UNK

REACTIONS (6)
  - Pain in extremity [Unknown]
  - Restlessness [Unknown]
  - Muscle spasms [Unknown]
  - Discomfort [Unknown]
  - Pain [Unknown]
  - Fibromyalgia [Unknown]
